FAERS Safety Report 23924128 (Version 1)
Quarter: 2024Q2

REPORT INFORMATION
  Report Type: Spontaneous
  Country: PT (occurrence: PT)
  Receive Date: 20240531
  Receipt Date: 20240531
  Transmission Date: 20240716
  Serious: Yes (Other)
  Sender: FDA-Public Use
  Company Number: None

PATIENT

DRUGS (1)
  1. CEFTRIAXONE [Suspect]
     Active Substance: CEFTRIAXONE\CEFTRIAXONE SODIUM
     Indication: Orchitis
     Dosage: UNKNOWN
     Route: 042
     Dates: start: 20240423, end: 20240423

REACTIONS (3)
  - Dyspnoea [Recovered/Resolved]
  - Rash [Unknown]
  - Lip oedema [Unknown]

NARRATIVE: CASE EVENT DATE: 20240423
